FAERS Safety Report 8559315 (Version 4)
Quarter: 2013Q1

REPORT INFORMATION
  Report Type: Report from Study
  Country: GB (occurrence: GB)
  Receive Date: 20120511
  Receipt Date: 20130213
  Transmission Date: 20140127
  Serious: Yes (Death, Hospitalization)
  Sender: FDA-Public Use
  Company Number: GB-ROCHE-1067261

PATIENT
  Age: 53 Year
  Sex: Female
  Weight: 72 kg

DRUGS (8)
  1. RITUXIMAB [Suspect]
     Indication: PRODUCT USED FOR UNKNOWN INDICATION
     Route: 065
     Dates: start: 20110224, end: 20110310
  2. METHOTREXATE [Concomitant]
     Route: 065
     Dates: end: 20110824
  3. DEXAMETHASONE [Concomitant]
     Route: 065
  4. OMEPRAZOLE [Concomitant]
  5. DOMPERIDONE [Concomitant]
  6. NAPROXEN [Concomitant]
  7. AMITRIPTYLINE [Concomitant]
  8. MISOPROSTOL [Concomitant]

REACTIONS (3)
  - Death [Fatal]
  - Metastases to spine [Not Recovered/Not Resolved]
  - Staphylococcal bacteraemia [Recovered/Resolved]
